FAERS Safety Report 10160936 (Version 1)
Quarter: 2014Q2

REPORT INFORMATION
  Report Type: Spontaneous
  Country: US (occurrence: None)
  Receive Date: 20140507
  Receipt Date: 20140507
  Transmission Date: 20141212
  Serious: No
  Sender: FDA-Public Use
  Company Number: None

PATIENT
  Sex: Female

DRUGS (1)
  1. LEVOTHYROXINE [Suspect]
     Indication: PRODUCT USED FOR UNKNOWN INDICATION
     Dosage: 150 MCG 1X DAILY

REACTIONS (4)
  - Product substitution issue [None]
  - Hepatic enzyme increased [None]
  - Abdominal pain upper [None]
  - Blood thyroid stimulating hormone abnormal [None]
